FAERS Safety Report 22914186 (Version 2)
Quarter: 2023Q4

REPORT INFORMATION
  Report Type: Spontaneous
  Country: US (occurrence: US)
  Receive Date: 20230906
  Receipt Date: 20231125
  Transmission Date: 20240109
  Serious: No
  Sender: FDA-Public Use
  Company Number: US-LUNDBECK-DKLU3066775

PATIENT
  Age: 69 Year
  Sex: Male
  Weight: 63.5 kg

DRUGS (3)
  1. NORTHERA [Suspect]
     Active Substance: DROXIDOPA
     Indication: Parkinson^s disease
     Route: 048
     Dates: start: 201911
  2. NORTHERA [Suspect]
     Active Substance: DROXIDOPA
     Indication: Orthostatic hypotension
     Route: 048
     Dates: start: 201911
  3. VPRIV [Concomitant]
     Active Substance: VELAGLUCERASE ALFA
     Indication: Product used for unknown indication
     Route: 065

REACTIONS (1)
  - Weight increased [Unknown]
